FAERS Safety Report 8175483-4 (Version None)
Quarter: 2012Q1

REPORT INFORMATION
  Report Type: 
  Country: None (occurrence: None)
  Receive Date: 20120229
  Receipt Date: 20120220
  Transmission Date: 20120608
  Serious: Yes (Disabling, Other)
  Sender: FDA-Public Use
  Company Number: US-ASTRAZENECA-2011SE21709

PATIENT
  Age: 87 Year
  Sex: Female

DRUGS (2)
  1. NEXIUM [Suspect]
     Route: 048
  2. ATACAND [Suspect]
     Route: 048

REACTIONS (7)
  - MALAISE [None]
  - THROAT CANCER [None]
  - VOCAL CORD PARALYSIS [None]
  - VIRAL INFECTION [None]
  - COLON CANCER [None]
  - WALLENBERG SYNDROME [None]
  - INSOMNIA [None]
